FAERS Safety Report 9055570 (Version 2)
Quarter: 2013Q1

REPORT INFORMATION
  Report Type: Spontaneous
  Country: JP (occurrence: JP)
  Receive Date: 20130206
  Receipt Date: 20130312
  Transmission Date: 20140127
  Serious: Yes (Other)
  Sender: FDA-Public Use
  Company Number: JP-PFIZER INC-2013042896

PATIENT
  Age: 76 Year
  Sex: Female
  Weight: 36 kg

DRUGS (9)
  1. CORTRIL [Suspect]
     Dosage: 15 MG, DAILY
     Route: 048
  2. SOLU-MEDROL [Suspect]
     Dosage: 160 MG, DAILY
     Route: 042
  3. PREDNISOLONE [Suspect]
     Indication: ASTHMA
     Dosage: 30 MG, DAILY
  4. BUDESONIDE [Concomitant]
     Dosage: LOW DOSE, 800 MICROG DAILY
  5. TULOBUTEROL [Concomitant]
     Dosage: UNK
  6. CEFTRIAXONE [Concomitant]
     Indication: LOWER RESPIRATORY TRACT INFECTION
     Dosage: UNK
  7. AZITHROMYCIN [Concomitant]
     Indication: LOWER RESPIRATORY TRACT INFECTION
     Dosage: UNK
  8. MEROPENEM [Concomitant]
     Indication: PSEUDOMONAS INFECTION
     Dosage: UNK
  9. PAZUFLOXACIN [Concomitant]
     Indication: PSEUDOMONAS INFECTION
     Dosage: UNK

REACTIONS (1)
  - Bronchopulmonary aspergillosis [Recovered/Resolved]
